FAERS Safety Report 5573200-5 (Version None)
Quarter: 2007Q4

REPORT INFORMATION
  Report Type: 
  Country: None (occurrence: None)
  Receive Date: 20071224
  Receipt Date: 20071213
  Transmission Date: 20080405
  Serious: Yes (Other)
  Sender: FDA-Public Use
  Company Number: US-SANOFI-SYNTHELABO-A03200706916

PATIENT
  Sex: Male
  Weight: 74.83 kg

DRUGS (5)
  1. SELENIUM [Concomitant]
     Dosage: UNK
     Route: 065
  2. COENZYME Q10 [Concomitant]
     Dosage: UNK
     Route: 065
  3. OMEGA 3 [Concomitant]
     Dosage: UNK
     Route: 065
  4. ATENOLOL [Concomitant]
     Route: 048
  5. PLAVIX [Suspect]
     Indication: CORONARY ARTERY BYPASS
     Route: 048

REACTIONS (1)
  - CAROTID ARTERY OCCLUSION [None]
